FAERS Safety Report 9630786 (Version 2)
Quarter: 2013Q4

REPORT INFORMATION
  Report Type: Spontaneous
  Country: US (occurrence: None)
  Receive Date: 20131015
  Receipt Date: 20131129
  Transmission Date: 20140711
  Serious: Yes (Other)
  Sender: FDA-Public Use
  Company Number: 1310-1276

PATIENT
  Age: 77 Year
  Sex: Female
  Weight: 63.05 kg

DRUGS (5)
  1. EYELEA (AFLIBERCEPT) (INJECTION) (AFLIBERCEPT) [Suspect]
     Indication: AGE-RELATED MACULAR DEGENERATION
     Dosage: 1 IN 6 WK, INTRAVITREAL
  2. PREDNISIONE (PREDNISOONE) [Concomitant]
  3. FISH OIL (FISH OIL) [Concomitant]
  4. VITAMIN C [Concomitant]
  5. VITAMINS [Concomitant]

REACTIONS (1)
  - Hyperthyroidism [None]
